FAERS Safety Report 23915681 (Version 1)
Quarter: 2024Q2

REPORT INFORMATION
  Report Type: Spontaneous
  Country: US (occurrence: US)
  Receive Date: 20240529
  Receipt Date: 20240529
  Transmission Date: 20240716
  Serious: Yes (Hospitalization)
  Sender: FDA-Public Use
  Company Number: US-TAKEDA-2024TUS051107

PATIENT

DRUGS (27)
  1. COLCHICINE [Suspect]
     Active Substance: COLCHICINE
     Indication: Cardiac disorder
     Dosage: 0.6 MILLIGRAM, BID
     Route: 065
  2. ASPIRIN [Concomitant]
     Active Substance: ASPIRIN
     Indication: Blood disorder
     Dosage: UNK, QD
     Route: 065
  3. PANTOPRAZOLE [Concomitant]
     Active Substance: PANTOPRAZOLE
     Indication: Dyspepsia
     Dosage: 40 MILLIGRAM, QD
     Route: 065
  4. VYNDAMAX [Concomitant]
     Active Substance: TAFAMIDIS
     Indication: Blood disorder
     Dosage: 61 MILLIGRAM, QD
     Route: 065
  5. ELIQUIS [Concomitant]
     Active Substance: APIXABAN
     Indication: Blood disorder
     Dosage: 5 MILLIGRAM, BID
     Route: 065
  6. ATENOLOL [Concomitant]
     Active Substance: ATENOLOL
     Indication: Blood pressure abnormal
     Dosage: 50 MILLIGRAM, QD
     Route: 065
  7. ATENOLOL [Concomitant]
     Active Substance: ATENOLOL
     Dosage: 100 MILLIGRAM, QD
     Route: 065
  8. BIOFREEZE [Concomitant]
     Active Substance: MENTHOL
     Indication: Back pain
     Dosage: UNK, QD
     Route: 065
  9. BIOFREEZE [Concomitant]
     Active Substance: MENTHOL
     Indication: Pain in extremity
  10. BIOFREEZE [Concomitant]
     Active Substance: MENTHOL
     Indication: Pain
  11. BUMETANIDE [Concomitant]
     Active Substance: BUMETANIDE
     Indication: Fluid imbalance
     Dosage: 1 MILLIGRAM, BID
     Route: 065
  12. ENTRESTO [Concomitant]
     Active Substance: SACUBITRIL\VALSARTAN
     Dosage: UNK, BID
     Route: 065
  13. FLUTICASONE [Concomitant]
     Active Substance: FLUTICASONE
     Indication: Fluid imbalance
     Dosage: UNK, QD
     Route: 065
  14. JARDIANCE [Concomitant]
     Active Substance: EMPAGLIFLOZIN
     Dosage: 25 MILLIGRAM, QD
     Route: 065
  15. LINZESS [Concomitant]
     Active Substance: LINACLOTIDE
     Indication: Bowel movement irregularity
     Dosage: 145 MICROGRAM, QD
     Route: 065
  16. MINOXIDIL [Concomitant]
     Active Substance: MINOXIDIL
     Indication: Blood pressure abnormal
     Dosage: UNK, QD
     Route: 065
  17. MUCINEX DM [Concomitant]
     Active Substance: DEXTROMETHORPHAN HYDROBROMIDE\GUAIFENESIN
     Dosage: UNK
     Route: 065
  18. POTASSIUM [Concomitant]
     Active Substance: POTASSIUM
     Indication: Blood potassium increased
     Dosage: 20 MILLIEQUIVALENT, QD
     Route: 065
  19. PRAVASTATIN [Concomitant]
     Active Substance: PRAVASTATIN
     Dosage: 40 MILLIGRAM, QD
     Route: 065
  20. SPIRONOLACTONE [Concomitant]
     Active Substance: SPIRONOLACTONE
     Dosage: 25 MILLIGRAM, QD
     Route: 065
  21. TAMSULOSIN [Concomitant]
     Active Substance: TAMSULOSIN
     Indication: Prostate infection
     Dosage: 0.4 MILLIGRAM, QD
     Route: 065
  22. TRELEGY ELLIPTA [Concomitant]
     Active Substance: FLUTICASONE FUROATE\UMECLIDINIUM BROMIDE\VILANTEROL TRIFENATATE
     Dosage: 20 MICROGRAM, QD
     Route: 065
  23. IRON [Concomitant]
     Active Substance: IRON
     Dosage: 27 MILLIGRAM, QD
     Route: 065
  24. VITAMIN A [Concomitant]
     Active Substance: VITAMIN A
     Indication: Cardiac disorder
     Dosage: 2400 MICROGRAM
     Route: 065
  25. VALSARTAN [Concomitant]
     Active Substance: VALSARTAN
     Dosage: 320 MILLIGRAM, QD
     Route: 065
  26. TRIAMTERENE [Concomitant]
     Active Substance: TRIAMTERENE
     Dosage: 37.525 MILLIGRAM, QD
     Route: 065
  27. AMVUTTRA [Concomitant]
     Active Substance: VUTRISIRAN
     Dosage: 25 MILLIGRAM, Q3MONTHS
     Route: 065

REACTIONS (2)
  - Somnolence [Not Recovered/Not Resolved]
  - Back pain [Recovered/Resolved]

NARRATIVE: CASE EVENT DATE: 20200101
